FAERS Safety Report 14509509 (Version 1)
Quarter: 2018Q1

REPORT INFORMATION
  Report Type: Spontaneous
  Country: US (occurrence: US)
  Receive Date: 20180207
  Receipt Date: 20180207
  Transmission Date: 20180509
  Serious: Yes (Life-Threatening, Hospitalization)
  Sender: FDA-Public Use
  Company Number: None

PATIENT
  Age: 77 Year
  Sex: Male
  Weight: 79.47 kg

DRUGS (2)
  1. LEVOFLOXACIN. [Suspect]
     Active Substance: LEVOFLOXACIN
     Indication: INFECTION
     Route: 048
     Dates: start: 20170830, end: 20170830
  2. METRONIDAZOLE. [Suspect]
     Active Substance: METRONIDAZOLE
     Indication: INFECTION
     Route: 048
     Dates: start: 20170830, end: 20170830

REACTIONS (11)
  - Lip erythema [None]
  - Urinary tract infection [None]
  - Speech disorder [None]
  - Dysphonia [None]
  - Oxygen saturation decreased [None]
  - Diarrhoea [None]
  - Wheezing [None]
  - Anaphylactic reaction [None]
  - Chromaturia [None]
  - Lip swelling [None]
  - Skin ulcer [None]

NARRATIVE: CASE EVENT DATE: 20170830
